FAERS Safety Report 8257536-5 (Version None)
Quarter: 2012Q2

REPORT INFORMATION
  Report Type: 
  Country: None (occurrence: None)
  Receive Date: 20120403
  Receipt Date: 20120319
  Transmission Date: 20120825
  Serious: Yes (Other)
  Sender: FDA-Public Use
  Company Number: CA-ARROW GEN-2012-04967

PATIENT
  Sex: Female
  Weight: 79.365 kg

DRUGS (6)
  1. TOPIRAMATE [Suspect]
     Dosage: 50 MG, DAILY
     Route: 048
     Dates: start: 20120319, end: 20120320
  2. TOPIRAMATE [Suspect]
     Dosage: 75 MG, DAILY
     Route: 048
     Dates: start: 20120316, end: 20120318
  3. TOPIRAMATE [Suspect]
     Indication: MIGRAINE
     Dosage: 25 MG, DAILY
     Route: 048
     Dates: start: 20120302, end: 20120308
  4. WARFARIN SODIUM [Concomitant]
     Indication: PRODUCT USED FOR UNKNOWN INDICATION
     Dosage: 11 MG, DAILY
     Dates: start: 20110701
  5. TOPIRAMATE [Suspect]
     Dosage: 25 MG, DAILY
     Route: 048
     Dates: start: 20120321
  6. TOPIRAMATE [Suspect]
     Dosage: 50 MG, DAILY
     Route: 048
     Dates: start: 20120309, end: 20120315

REACTIONS (7)
  - BALANCE DISORDER [None]
  - COORDINATION ABNORMAL [None]
  - DRUG INEFFECTIVE [None]
  - PARAESTHESIA [None]
  - DYSGEUSIA [None]
  - DIZZINESS [None]
  - DYSARTHRIA [None]
